FAERS Safety Report 5776688-X (Version None)
Quarter: 2008Q2

REPORT INFORMATION
  Report Type: 
  Country: None (occurrence: None)
  Receive Date: 20080618
  Receipt Date: 20080526
  Transmission Date: 20081010
  Serious: No
  Sender: FDA-Public Use
  Company Number: US-BAYER-200819689NA

PATIENT
  Age: 61 Year
  Sex: Male

DRUGS (2)
  1. LEVITRA [Suspect]
     Indication: ERECTILE DYSFUNCTION
     Dosage: AS USED: 20 MG  UNIT DOSE: 20 MG
     Route: 048
  2. DIOVAN [Concomitant]

REACTIONS (4)
  - ERECTILE DYSFUNCTION [None]
  - ERUCTATION [None]
  - FLATULENCE [None]
  - NAUSEA [None]
